FAERS Safety Report 6809310-1 (Version None)
Quarter: 2010Q2

REPORT INFORMATION
  Report Type: 
  Country: None (occurrence: None)
  Receive Date: 20100630
  Receipt Date: 20100624
  Transmission Date: 20101027
  Serious: Yes (Hospitalization, Other)
  Sender: FDA-Public Use
  Company Number: KR-TYCO HEALTHCARE/MALLINCKRODT-T201001509

PATIENT
  Age: 18 Year
  Sex: Male

DRUGS (4)
  1. METHYLIN [Suspect]
     Indication: MAJOR DEPRESSION
     Dosage: 10 MG, QD FOR ONE MONTH
  2. METHYLIN [Interacting]
     Dosage: 20 MG ON DAY OF ER VISIT
  3. PAROXETINE [Interacting]
     Indication: MAJOR DEPRESSION
     Dosage: 20 MG, QD FOR ONE MONTH
  4. PAROXETINE [Interacting]
     Dosage: 40 MG ON DAY OF ER VISIT

REACTIONS (4)
  - DRUG INTERACTION [None]
  - INCORRECT DOSE ADMINISTERED [None]
  - MANIA [None]
  - SEROTONIN SYNDROME [None]
